FAERS Safety Report 8555963 (Version 3)
Quarter: 2013Q4

REPORT INFORMATION
  Report Type: Spontaneous
  Country: US (occurrence: US)
  Receive Date: 20120510
  Receipt Date: 20131231
  Transmission Date: 20140711
  Serious: Yes (Hospitalization)
  Sender: FDA-Public Use
  Company Number: US-BAYER-2012-045460

PATIENT
  Age: 28 Year
  Sex: Female
  Weight: 104.31 kg

DRUGS (4)
  1. YAZ [Suspect]
     Dosage: UNK
     Dates: start: 2007
  2. YASMIN [Suspect]
     Dosage: UNK
     Dates: start: 2007
  3. LORTAB [Concomitant]
     Dosage: 7.5 MG, UNK
  4. COMPAZINE [Concomitant]
     Dosage: 10 MG, UNK

REACTIONS (11)
  - Cholecystitis infective [None]
  - Cholecystitis chronic [None]
  - Syncope [None]
  - Vomiting [None]
  - Abdominal pain upper [None]
  - Eating disorder [None]
  - Pain [None]
  - Fear [None]
  - Injury [None]
  - Pain [None]
  - Off label use [None]
